FAERS Safety Report 7371041-X (Version None)
Quarter: 2011Q1

REPORT INFORMATION
  Report Type: 
  Country: None (occurrence: None)
  Receive Date: 20110318
  Receipt Date: 20110318
  Transmission Date: 20110831
  Serious: Yes (Hospitalization)
  Sender: FDA-Public Use
  Company Number: None

PATIENT
  Sex: Male
  Weight: 85 kg

DRUGS (5)
  1. VINBLASTINE [Concomitant]
  2. SSG 100MG/ ML UNKNOWN [Suspect]
     Dosage: 1200MG PER M2, DAYS 1 THRU 4, Q4W, IV
     Route: 042
  3. CISPLATIN [Concomitant]
  4. INTRON A [Suspect]
     Indication: MALIGNANT MELANOMA
     Dosage: 3 MU PER M2, DAYS 1-4 Q4W, SQ
     Route: 058
  5. DACARBAZINE [Concomitant]

REACTIONS (1)
  - WOUND INFECTION STAPHYLOCOCCAL [None]
